FAERS Safety Report 6445680-4 (Version None)
Quarter: 2009Q4

REPORT INFORMATION
  Report Type: 
  Country: None (occurrence: None)
  Receive Date: 20091118
  Receipt Date: 20091118
  Transmission Date: 20100525
  Serious: Yes (Other)
  Sender: FDA-Public Use
  Company Number: None

PATIENT
  Sex: Female
  Weight: 92.5338 kg

DRUGS (2)
  1. RISPERDAL [Suspect]
     Indication: FLASHBACK
     Dosage: .5 1X AT BEDTIME
  2. RISPERDAL [Suspect]
     Indication: NIGHTMARE
     Dosage: .5 1X AT BEDTIME

REACTIONS (1)
  - SUICIDAL IDEATION [None]
